FAERS Safety Report 19456444 (Version 1)
Quarter: 2021Q2

REPORT INFORMATION
  Report Type: Spontaneous
  Country: NL (occurrence: NL)
  Receive Date: 20210624
  Receipt Date: 20210624
  Transmission Date: 20210717
  Serious: Yes (Hospitalization)
  Sender: FDA-Public Use
  Company Number: NL-TEVA-2021-NL-1925293

PATIENT
  Age: 91 Year
  Sex: Female
  Weight: 65 kg

DRUGS (5)
  1. DEXTRAN 70/HYPROMELLOSE OOGDR 1/3MG/ML / BRAND NAME NOT SPECIFIED [Concomitant]
     Dosage: 1/3 MG/ML (MILLIGRAMS PER MILLILITER); THERAPY START AND END DATE: ASKU
  2. CLOBETASOL CREME  0,5MG/G / BRAND NAME NOT SPECIFIED [Concomitant]
     Dosage: 0.5 MG/G (MILLIGRAM PER GRAM); THERAPY START AND END DATE: ASKU
  3. DALTEPARINE INJVLST 25.000IE/ML / BRAND NAME NOT SPECIFIED [Concomitant]
     Dosage: INJECTION FLUID, 25,000 IU/ML (UNITS PER MILLILITER);THERAPY START AND END DATE: ASKU
  4. AMOXICILLINE CAPSULE 500MG / BRAND NAME NOT SPECIFIED [Suspect]
     Active Substance: AMOXICILLIN
     Indication: STOMATITIS
     Dosage: 1500 MILLIGRAM DAILY; 3X A DAY 1 PIECE
     Dates: start: 202105, end: 20210604
  5. CLEMASTINE INJVLST 1MG/ML / BRAND NAME NOT SPECIFIED [Concomitant]
     Dosage: INJECTION LIQUID, 1 MG/ML (MILLIGRAM PER MILLILITER); THERAPY START AND END DATE: ASKU

REACTIONS (4)
  - Dehydration [Recovering/Resolving]
  - Pruritus [Unknown]
  - Skin swelling [Unknown]
  - Erythema [Recovering/Resolving]

NARRATIVE: CASE EVENT DATE: 20210606
